FAERS Safety Report 21075863 (Version 2)
Quarter: 2022Q3

REPORT INFORMATION
  Report Type: Spontaneous
  Country: US (occurrence: US)
  Receive Date: 20220713
  Receipt Date: 20220713
  Transmission Date: 20221027
  Serious: Yes (Hospitalization, Other)
  Sender: FDA-Public Use
  Company Number: US-PFIZER INC-PV202200015036

PATIENT
  Age: 75 Year
  Sex: Male

DRUGS (1)
  1. METHYLPREDNISOLONE ACETATE [Suspect]
     Active Substance: METHYLPREDNISOLONE ACETATE
     Indication: Back pain
     Dosage: UNK
     Route: 008

REACTIONS (1)
  - Spinal cord infarction [Not Recovered/Not Resolved]
